FAERS Safety Report 22182702 (Version 1)
Quarter: 2023Q2

REPORT INFORMATION
  Report Type: Spontaneous
  Country: US (occurrence: US)
  Receive Date: 20230406
  Receipt Date: 20230406
  Transmission Date: 20230722
  Serious: Yes (Other)
  Sender: FDA-Public Use
  Company Number: US-MYLANLABS-2023M1036457

PATIENT
  Age: 52 Year
  Sex: Female

DRUGS (3)
  1. IFOSFAMIDE [Suspect]
     Active Substance: IFOSFAMIDE
     Indication: Diffuse large B-cell lymphoma
     Dosage: UNK
     Route: 065
  2. LENALIDOMIDE [Suspect]
     Active Substance: LENALIDOMIDE
     Indication: Diffuse large B-cell lymphoma
     Dosage: UNK, CYCLE, RECEIVED 2 CYCLES
     Route: 065
  3. TAFASITAMAB [Suspect]
     Active Substance: TAFASITAMAB
     Indication: Diffuse large B-cell lymphoma
     Dosage: UNK, CYCLE (RECEIVED 2 CYCLES)
     Route: 065

REACTIONS (5)
  - Encephalopathy [Recovered/Resolved]
  - Renal failure [Unknown]
  - Immune-mediated enterocolitis [Unknown]
  - Drug ineffective [Unknown]
  - Disease progression [Recovered/Resolved]
